FAERS Safety Report 5014650-5 (Version None)
Quarter: 2006Q2

REPORT INFORMATION
  Report Type: 
  Country: None (occurrence: None)
  Receive Date: 20060531
  Receipt Date: 20060323
  Transmission Date: 20061013
  Serious: Yes (Life-Threatening, Hospitalization)
  Sender: FDA-Public Use
  Company Number: DE-MERCK-0603DEU00158

PATIENT
  Age: 86 Year
  Sex: Male
  Weight: 110 kg

DRUGS (7)
  1. PROSCAR [Suspect]
     Indication: BENIGN PROSTATIC HYPERPLASIA
     Route: 048
     Dates: start: 20060309, end: 20060310
  2. ALLOPURINOL [Concomitant]
     Indication: HYPERURICAEMIA
     Route: 048
  3. GLYBURIDE [Concomitant]
     Indication: DIABETES MELLITUS NON-INSULIN-DEPENDENT
     Route: 048
  4. CLOPAMIDE AND RESERPINE [Concomitant]
     Indication: HYPERTENSION
     Route: 048
  5. ASPIRIN [Concomitant]
     Indication: THROMBOSIS PROPHYLAXIS
     Route: 048
  6. LATANOPROST [Concomitant]
     Indication: GLAUCOMA
     Route: 047
  7. TRUSOPT [Concomitant]
     Indication: GLAUCOMA
     Route: 047

REACTIONS (4)
  - ATRIOVENTRICULAR BLOCK SECOND DEGREE [None]
  - ATRIOVENTRICULAR BLOCK THIRD DEGREE [None]
  - BUNDLE BRANCH BLOCK LEFT [None]
  - GENERAL PHYSICAL HEALTH DETERIORATION [None]
